FAERS Safety Report 23928378 (Version 1)
Quarter: 2024Q2

REPORT INFORMATION
  Report Type: Report from Study
  Country: JP (occurrence: JP)
  Receive Date: 20240531
  Receipt Date: 20240531
  Transmission Date: 20240716
  Serious: Yes (Death, Other)
  Sender: FDA-Public Use
  Company Number: JP-TAKEDA-2024TJP007951

PATIENT
  Age: 81 Year
  Sex: Male

DRUGS (13)
  1. LEUPROLIDE ACETATE [Suspect]
     Active Substance: ISOPROPYL ALCOHOL\LEUPROLIDE ACETATE
     Indication: Bulbospinal muscular atrophy congenital
     Route: 058
     Dates: start: 20220419, end: 20230704
  2. OLMESARTAN [Concomitant]
     Active Substance: OLMESARTAN
     Indication: Product used for unknown indication
     Dosage: FORM STRENGTH : 20 MILLIGRAM
     Route: 065
     Dates: end: 20230902
  3. SILODOSIN [Concomitant]
     Active Substance: SILODOSIN
     Indication: Product used for unknown indication
     Dosage: FORM STRENGTH : 4 MILLIGRAM
     Route: 065
     Dates: end: 20230902
  4. JANUVIA [Concomitant]
     Active Substance: SITAGLIPTIN PHOSPHATE
     Indication: Product used for unknown indication
     Dosage: FORM STRENGTH : 50 MILLIGRAM
     Route: 065
     Dates: end: 20230902
  5. MONTELUKAST SODIUM [Concomitant]
     Active Substance: MONTELUKAST SODIUM
     Indication: Product used for unknown indication
     Dosage: FORM STRENGTH : 10 MILLIGRAM
     Route: 065
     Dates: end: 20230902
  6. METFORMIN HYDROCHLORIDE [Concomitant]
     Active Substance: METFORMIN HYDROCHLORIDE
     Indication: Product used for unknown indication
     Dosage: FORM STRENGTH : 500 MILLIGRAM
     Route: 065
     Dates: end: 20230902
  7. DILTIAZEM HYDROCHLORIDE [Concomitant]
     Active Substance: DILTIAZEM HYDROCHLORIDE
     Indication: Product used for unknown indication
     Dosage: FORM STRENGTH : 200 MILLIGRAM
     Route: 065
     Dates: end: 20230902
  8. LASIX [Concomitant]
     Active Substance: FUROSEMIDE
     Indication: Product used for unknown indication
     Dosage: FORM STRENGTH : 40 MILLIGRAM
     Route: 065
     Dates: end: 20230902
  9. NIFEDIPINE [Concomitant]
     Active Substance: NIFEDIPINE
     Indication: Product used for unknown indication
     Dosage: FORM STRENGTH : 20 MILLIGRAM
     Route: 065
     Dates: end: 20230902
  10. SPIRONOLACTONE [Concomitant]
     Active Substance: SPIRONOLACTONE
     Indication: Product used for unknown indication
     Dosage: FORM STRENGTH : 25 MILLIGRAM
     Route: 065
     Dates: end: 20230902
  11. VONOPRAZAN FUMARATE [Concomitant]
     Active Substance: VONOPRAZAN FUMARATE
     Indication: Product used for unknown indication
     Dosage: FORM STRENGTH :10 MILLIGRAM
     Route: 065
     Dates: end: 20230902
  12. FEBUXOSTAT EG [Concomitant]
     Indication: Product used for unknown indication
     Dosage: FORM STRENGTH : 20 MILLIGRAM
     Route: 065
     Dates: end: 20230902
  13. ROSUVASTATIN [Concomitant]
     Active Substance: ROSUVASTATIN
     Indication: Product used for unknown indication
     Dosage: FORM STRENGTH : 2.5 MILLIGRAM
     Route: 065
     Dates: end: 20230902

REACTIONS (1)
  - Death [Fatal]

NARRATIVE: CASE EVENT DATE: 20230902
